FAERS Safety Report 17402550 (Version 1)
Quarter: 2020Q1

REPORT INFORMATION
  Report Type: Spontaneous
  Country: CZ (occurrence: CZ)
  Receive Date: 20200211
  Receipt Date: 20200211
  Transmission Date: 20200409
  Serious: Yes (Hospitalization)
  Sender: FDA-Public Use
  Company Number: CZ-ROCHE-2529040

PATIENT
  Age: 3 Month
  Sex: Male

DRUGS (4)
  1. METHYLPREDNISOLONE ACETATE. [Suspect]
     Active Substance: METHYLPREDNISOLONE ACETATE
     Indication: WARM TYPE HAEMOLYTIC ANAEMIA
     Dosage: 15 MG/KG FOR THREE CONSECUTIVE DAYS
     Route: 042
  2. RITUXIMAB. [Suspect]
     Active Substance: RITUXIMAB
     Indication: WARM TYPE HAEMOLYTIC ANAEMIA
     Dosage: 375 MG/M2 TWO COURSES FOR FOUR CONSECUTIVE WEEKS
     Route: 041
  3. SIROLIMUS. [Suspect]
     Active Substance: SIROLIMUS
     Indication: WARM TYPE HAEMOLYTIC ANAEMIA
     Route: 065
  4. PREDNISONE. [Suspect]
     Active Substance: PREDNISONE
     Indication: WARM TYPE HAEMOLYTIC ANAEMIA
     Route: 048

REACTIONS (6)
  - Intentional product use issue [Unknown]
  - Off label use [Unknown]
  - Blood cholesterol increased [Unknown]
  - Blood triglycerides increased [Unknown]
  - Transaminases increased [Unknown]
  - Febrile infection [Unknown]
